FAERS Safety Report 4794501-4 (Version None)
Quarter: 2005Q4

REPORT INFORMATION
  Report Type: 
  Country: None (occurrence: None)
  Receive Date: 20051011
  Receipt Date: 20051004
  Transmission Date: 20060501
  Serious: Yes (Death)
  Sender: FDA-Public Use
  Company Number: US-BRISTOL-MYERS SQUIBB COMPANY-13136296

PATIENT
  Age: 18 Year

DRUGS (3)
  1. ARIPIPRAZOLE [Suspect]
     Route: 048
  2. TOPIRAMATE [Suspect]
  3. BUPROPION HCL [Suspect]

REACTIONS (1)
  - COMPLETED SUICIDE [None]
